FAERS Safety Report 10252756 (Version 6)
Quarter: 2014Q3

REPORT INFORMATION
  Report Type: Spontaneous
  Country: JP (occurrence: JP)
  Receive Date: 20140623
  Receipt Date: 20140804
  Transmission Date: 20150326
  Serious: Yes (Death)
  Sender: FDA-Public Use
  Company Number: JP-B.I. PHARMACEUTICALS,INC./RIDGEFIELD-2014-BI-22673NB

PATIENT
  Age: 67 Year
  Sex: Female
  Weight: 56.1 kg

DRUGS (5)
  1. CELECOX [Concomitant]
     Active Substance: CELECOXIB
     Route: 065
  2. GILOTRIF [Suspect]
     Active Substance: AFATINIB
     Indication: NON-SMALL CELL LUNG CANCER
     Dosage: 40 MG
     Route: 048
     Dates: start: 20140519, end: 20140606
  3. DECADRON [Concomitant]
     Active Substance: DEXAMETHASONE
     Route: 065
  4. NEXIUM [Concomitant]
     Active Substance: ESOMEPRAZOLE MAGNESIUM
     Route: 065
  5. XARELTO [Concomitant]
     Active Substance: RIVAROXABAN
     Route: 065

REACTIONS (5)
  - Erythema [Not Recovered/Not Resolved]
  - Diarrhoea [Unknown]
  - Paronychia [Not Recovered/Not Resolved]
  - Respiratory failure [Fatal]
  - Pneumocystis jirovecii pneumonia [Fatal]

NARRATIVE: CASE EVENT DATE: 20140521
